FAERS Safety Report 5239908-6 (Version None)
Quarter: 2007Q1

REPORT INFORMATION
  Report Type: 
  Country: None (occurrence: None)
  Receive Date: 20070216
  Receipt Date: 20061221
  Transmission Date: 20070707
  Serious: Yes (Other)
  Sender: FDA-Public Use
  Company Number: US-PFIZER INC-2006155458

PATIENT
  Sex: Female

DRUGS (5)
  1. CHANTIX [Suspect]
  2. NICOTINE [Interacting]
  3. IBUPROFEN [Interacting]
     Indication: PAIN
  4. ALL OTHER THERAPEUTIC PRODUCTS [Interacting]
  5. CYCLOSPORINE [Interacting]

REACTIONS (9)
  - CRYING [None]
  - DRUG EFFECT DECREASED [None]
  - DRUG INEFFECTIVE [None]
  - DRUG INTERACTION [None]
  - DRUG WITHDRAWAL SYNDROME [None]
  - DRY EYE [None]
  - IRRITABILITY [None]
  - LACRIMATION INCREASED [None]
  - PAIN [None]
